FAERS Safety Report 5599713-8 (Version None)
Quarter: 2008Q1

REPORT INFORMATION
  Report Type: 
  Country: None (occurrence: None)
  Receive Date: 20080118
  Receipt Date: 20080118
  Transmission Date: 20080703
  Serious: Yes (Hospitalization)
  Sender: FDA-Public Use
  Company Number: None

PATIENT
  Age: 42 Year
  Sex: Male

DRUGS (7)
  1. DARUNAVIR [Suspect]
     Indication: HIV INFECTION
     Dosage: 600MG PO BID
     Route: 048
     Dates: start: 20070901, end: 20071201
  2. ETHAMBUTOL HYDROCHLORIDE [Concomitant]
  3. EPZICOM [Concomitant]
  4. RITONAVIR [Concomitant]
  5. BACTRIM [Concomitant]
  6. FLUCONAZOLE [Concomitant]
  7. LEVOFLOXACIN [Concomitant]

REACTIONS (1)
  - ABDOMINAL PAIN [None]
